FAERS Safety Report 21401331 (Version 3)
Quarter: 2022Q4

REPORT INFORMATION
  Report Type: Spontaneous
  Country: US (occurrence: US)
  Receive Date: 20221003
  Receipt Date: 20221029
  Transmission Date: 20230112
  Serious: No
  Sender: FDA-Public Use
  Company Number: None

PATIENT
  Sex: Female

DRUGS (2)
  1. LORAZEPAM [Suspect]
     Active Substance: LORAZEPAM
     Indication: Anxiety
     Dosage: HALF PILL
     Route: 048
     Dates: start: 20220901, end: 20220901
  2. LORAZEPAM [Suspect]
     Active Substance: LORAZEPAM
     Indication: Restlessness

REACTIONS (2)
  - Circumstance or information capable of leading to medication error [Unknown]
  - Product physical issue [Unknown]

NARRATIVE: CASE EVENT DATE: 20220901
